FAERS Safety Report 5490274-0 (Version None)
Quarter: 2007Q4

REPORT INFORMATION
  Report Type: 
  Country: None (occurrence: None)
  Receive Date: 20071018
  Receipt Date: 20070925
  Transmission Date: 20080405
  Serious: Yes (Other)
  Sender: FDA-Public Use
  Company Number: FR-GILEAD-2007-0013515

PATIENT
  Sex: Male
  Weight: 83 kg

DRUGS (5)
  1. TRUVADA [Suspect]
     Indication: HIV INFECTION
     Route: 048
     Dates: start: 20070822
  2. SUSTIVA [Suspect]
     Indication: HIV INFECTION
     Route: 048
     Dates: start: 20070822, end: 20070921
  3. RIFINAH [Suspect]
     Indication: TUBERCULOSIS
     Route: 048
     Dates: start: 20070713, end: 20070921
  4. RIFAMPICIN [Suspect]
     Indication: TUBERCULOSIS
     Route: 048
     Dates: start: 20070713, end: 20070921
  5. BACTRIM [Suspect]
     Route: 048
     Dates: start: 20070613, end: 20070921

REACTIONS (2)
  - ANOREXIA [None]
  - JAUNDICE [None]
